FAERS Safety Report 8352991-4 (Version None)
Quarter: 2012Q2

REPORT INFORMATION
  Report Type: 
  Country: None (occurrence: None)
  Receive Date: 20120511
  Receipt Date: 20120502
  Transmission Date: 20120825
  Serious: Yes (Death, Hospitalization)
  Sender: FDA-Public Use
  Company Number: US-NOVOPROD-350768

PATIENT
  Age: 72 Year
  Sex: Female
  Weight: 58.957 kg

DRUGS (2)
  1. NOVOLOG MIX 70/30 [Suspect]
     Dosage: 17 U, EVERY EVENING
     Route: 058
  2. NOVOLOG MIX 70/30 [Suspect]
     Indication: TYPE 2 DIABETES MELLITUS
     Dosage: 24 U, EVERY MORNING
     Route: 058

REACTIONS (4)
  - HYPOGLYCAEMIC COMA [None]
  - CARDIO-RESPIRATORY ARREST [None]
  - PNEUMONIA [None]
  - CEREBROVASCULAR ACCIDENT [None]
